FAERS Safety Report 8505389-X (Version None)
Quarter: 2012Q2

REPORT INFORMATION
  Report Type: 
  Country: None (occurrence: None)
  Receive Date: 20120405
  Receipt Date: 20091016
  Transmission Date: 20120825
  Serious: Yes (Hospitalization)
  Sender: FDA-Public Use
  Company Number: PHEH2009US13995

PATIENT
  Age: 38 Year
  Sex: Male
  Weight: 57.1 kg

DRUGS (5)
  1. RECLAST [Suspect]
     Indication: OSTEOPOROSIS
     Dosage: 5 MG ONCE/YEAR, INTRAVENOUS
     Route: 042
     Dates: start: 20090819, end: 20090819
  2. PROTOPIC [Concomitant]
  3. VITAMIN D [Concomitant]
  4. ANDROGEL [Concomitant]
  5. CALCIUM [Concomitant]

REACTIONS (2)
  - HYPOCALCAEMIA [None]
  - MYALGIA [None]
